FAERS Safety Report 8479866 (Version 10)
Quarter: 2013Q3

REPORT INFORMATION
  Report Type: Report from Study
  Country: US (occurrence: US)
  Receive Date: 20120328
  Receipt Date: 20130722
  Transmission Date: 20140515
  Serious: Yes (Life-Threatening, Other)
  Sender: FDA-Public Use
  Company Number: US-JNJFOC-20120312630

PATIENT
  Age: 71 Year
  Sex: Male
  Weight: 140 kg

DRUGS (40)
  1. ABIRATERONE ACETATE [Suspect]
     Route: 048
  2. ABIRATERONE ACETATE [Suspect]
     Indication: PROSTATE CANCER METASTATIC
     Route: 048
     Dates: start: 20090716, end: 20120419
  3. PREDNISONE [Suspect]
     Indication: PROSTATE CANCER METASTATIC
     Route: 048
     Dates: start: 20120423
  4. PREDNISONE [Suspect]
     Indication: PROSTATE CANCER METASTATIC
     Route: 048
     Dates: start: 20090716
  5. ASPIRIN [Concomitant]
     Indication: CARDIOVASCULAR EVENT PROPHYLAXIS
     Route: 048
     Dates: start: 200001
  6. CARTIA [Concomitant]
     Indication: HYPERTENSION
     Route: 048
     Dates: start: 200107
  7. CLARINEX [Concomitant]
     Indication: MULTIPLE ALLERGIES
     Route: 048
     Dates: start: 200604
  8. COREG [Concomitant]
     Indication: CORONARY ARTERY DISEASE
     Route: 048
     Dates: start: 200509
  9. LANTUS [Concomitant]
     Indication: DIABETES MELLITUS
     Route: 058
     Dates: start: 200708
  10. NOVOLOG [Concomitant]
     Indication: DIABETES MELLITUS
     Dosage: EVERY MORNING
     Route: 058
     Dates: start: 200708
  11. NOVOLOG [Concomitant]
     Indication: DIABETES MELLITUS
     Dosage: EVERY EVENING
     Route: 058
     Dates: start: 200708
  12. PLAVIX [Concomitant]
     Indication: ARTERIOSCLEROSIS
     Route: 048
     Dates: start: 200009, end: 20120508
  13. SIMCOR [Concomitant]
     Indication: HYPERLIPIDAEMIA
     Route: 048
     Dates: start: 200808
  14. SINGULAIR [Concomitant]
     Indication: MULTIPLE ALLERGIES
     Route: 048
     Dates: start: 200604
  15. TETRACYCLINE [Concomitant]
     Indication: ROSACEA
     Route: 048
     Dates: start: 19970131
  16. VANTAS [Concomitant]
     Indication: CANCER HORMONAL THERAPY
     Route: 065
     Dates: start: 20090716
  17. VANTAS [Concomitant]
     Indication: CANCER HORMONAL THERAPY
     Route: 065
     Dates: start: 200610
  18. TORSEMIDE [Concomitant]
     Indication: HYPERTENSION
     Route: 048
     Dates: start: 20110811
  19. TORSEMIDE [Concomitant]
     Indication: HYPERTENSION
     Route: 048
     Dates: start: 20100305, end: 20101230
  20. TORSEMIDE [Concomitant]
     Indication: HYPERTENSION
     Route: 048
     Dates: start: 20101230, end: 20110811
  21. TORSEMIDE [Concomitant]
     Indication: HYPERTENSION
     Route: 048
     Dates: start: 20100128, end: 20100305
  22. TORSEMIDE [Concomitant]
     Indication: HYPERTENSION
     Route: 048
     Dates: start: 200009, end: 20100128
  23. EPLERENONE [Concomitant]
     Indication: OEDEMA
     Route: 048
     Dates: start: 20111119
  24. CALTRATE +D [Concomitant]
     Indication: MEDICAL DIET
     Route: 048
     Dates: start: 20120312, end: 20120518
  25. CALTRATE +D [Concomitant]
     Indication: MEDICAL DIET
     Route: 048
     Dates: start: 20100128, end: 20111202
  26. ALLOPURINOL [Concomitant]
     Indication: PROPHYLAXIS
     Route: 065
     Dates: start: 20120412, end: 20120518
  27. ALLOPURINOL [Concomitant]
     Indication: PROPHYLAXIS
     Route: 065
     Dates: start: 20120324, end: 20120412
  28. ALLOPURINOL [Concomitant]
     Indication: HYPERURICAEMIA
     Route: 065
     Dates: start: 20120412, end: 20120518
  29. ALLOPURINOL [Concomitant]
     Indication: HYPERURICAEMIA
     Route: 065
     Dates: start: 20120324, end: 20120412
  30. AVAPRO [Concomitant]
     Indication: HYPERTENSION
     Route: 065
     Dates: start: 200201, end: 20111006
  31. AVAPRO [Concomitant]
     Indication: HYPERTENSION
     Route: 065
     Dates: start: 200201, end: 20111230
  32. CALTRATE +D [Concomitant]
     Indication: MEDICAL DIET
     Route: 048
     Dates: start: 20120312, end: 20120518
  33. CALTRATE +D [Concomitant]
     Indication: MEDICAL DIET
     Route: 048
     Dates: start: 20100128, end: 20111202
  34. ADVIL [Concomitant]
     Indication: MUSCULOSKELETAL PAIN
     Route: 048
     Dates: start: 201109, end: 20111202
  35. ADVIL [Concomitant]
     Indication: BACK PAIN
     Route: 048
     Dates: start: 201109, end: 20111202
  36. LASIX [Concomitant]
     Indication: OEDEMA PERIPHERAL
     Route: 048
     Dates: start: 201105, end: 20111202
  37. TRAMADOL [Concomitant]
     Indication: CANCER PAIN
     Route: 048
     Dates: start: 20111121, end: 20111230
  38. ALBUTEROL [Concomitant]
     Indication: BRONCHITIS
     Route: 045
     Dates: start: 20120412
  39. ALBUTEROL [Concomitant]
     Indication: CHRONIC OBSTRUCTIVE PULMONARY DISEASE
     Route: 045
     Dates: start: 20120412
  40. PROAIR HFA [Concomitant]
     Indication: CHRONIC OBSTRUCTIVE PULMONARY DISEASE
     Dosage: 2 PUFFS EVERY 4-6 HOURS
     Route: 045
     Dates: start: 20120412

REACTIONS (3)
  - Blood uric acid increased [Recovered/Resolved]
  - Hyperuricaemia [Recovered/Resolved]
  - Hyperuricaemia [Not Recovered/Not Resolved]
